FAERS Safety Report 4433094-8 (Version None)
Quarter: 2004Q3

REPORT INFORMATION
  Report Type: 
  Country: None (occurrence: None)
  Receive Date: 20040823
  Receipt Date: 20040812
  Transmission Date: 20050211
  Serious: Yes (Hospitalization)
  Sender: FDA-Public Use
  Company Number: CIP04000935

PATIENT
  Age: 49 Year
  Sex: Female

DRUGS (6)
  1. ACTONEL [Suspect]
     Indication: OSTEOPENIA
     Dosage: 35 MG ONCE WEEKLY, ORAL
     Route: 048
     Dates: start: 20040410, end: 20040417
  2. NORVASC [Concomitant]
  3. SYNTHROID [Concomitant]
  4. SINGULAIR [Concomitant]
  5. ZYRTEC [Concomitant]
  6. PREMARIN [Concomitant]

REACTIONS (12)
  - ABDOMINAL DISTENSION [None]
  - ABDOMINAL PAIN UPPER [None]
  - ABDOMINAL RIGIDITY [None]
  - ARTHRALGIA [None]
  - BONE PAIN [None]
  - DIARRHOEA [None]
  - DIVERTICULUM [None]
  - EATING DISORDER [None]
  - FATIGUE [None]
  - HYPOCALCAEMIA [None]
  - MALAISE [None]
  - WEIGHT DECREASED [None]
